FAERS Safety Report 7936565-2 (Version None)
Quarter: 2011Q4

REPORT INFORMATION
  Report Type: 
  Country: None (occurrence: None)
  Receive Date: 20111123
  Receipt Date: 20110904
  Transmission Date: 20120403
  Serious: No
  Sender: FDA-Public Use
  Company Number: US-BAYER-2011-088735

PATIENT
  Sex: Female

DRUGS (4)
  1. SUDAFED 12 HOUR [Concomitant]
  2. NYQUIL [Concomitant]
  3. ALLERGY MEDICATION [Concomitant]
  4. ALEVE (CAPLET) [Suspect]

REACTIONS (1)
  - NO ADVERSE EVENT [None]
